FAERS Safety Report 24795496 (Version 1)
Quarter: 2024Q4

REPORT INFORMATION
  Report Type: Spontaneous
  Country: US (occurrence: US)
  Receive Date: 20241231
  Receipt Date: 20241231
  Transmission Date: 20250114
  Serious: Yes (Hospitalization)
  Sender: RIGEL PHARMACEUTICALS
  Company Number: US-RIGEL Pharmaceuticals, INC-20241200176

PATIENT
  Sex: Female

DRUGS (1)
  1. GAVRETO [Suspect]
     Active Substance: PRALSETINIB
     Indication: Thyroid cancer
     Dosage: 200 MG, ONCE A DAY
     Route: 048
     Dates: start: 20241009

REACTIONS (8)
  - Hospitalisation [Unknown]
  - Amnesia [Unknown]
  - Pain of skin [Unknown]
  - Hypercalcaemia [Unknown]
  - Loss of personal independence in daily activities [Unknown]
  - Product prescribing issue [Unknown]
  - Rash [Unknown]
  - Fatigue [Unknown]

NARRATIVE: CASE EVENT DATE: 20240101
